FAERS Safety Report 5183827-0 (Version None)
Quarter: 2006Q4

REPORT INFORMATION
  Report Type: 
  Country: None (occurrence: None)
  Receive Date: 20061220
  Receipt Date: 20061219
  Transmission Date: 20070319
  Serious: Yes (Other)
  Sender: FDA-Public Use
  Company Number: US-GLAXOSMITHKLINE-A0632117A

PATIENT
  Sex: Male

DRUGS (4)
  1. ADVAIR DISKUS 100/50 [Suspect]
     Indication: CHRONIC OBSTRUCTIVE PULMONARY DISEASE
     Dosage: 1PUFF TWICE PER DAY
     Route: 055
  2. SPIRIVA [Concomitant]
  3. MEDICATION FOR HIGH BLOOD PRESSURE [Concomitant]
  4. CHOLESTEROL REDUCING AGENT [Concomitant]

REACTIONS (4)
  - DRUG INEFFECTIVE [None]
  - RESPIRATORY DISORDER [None]
  - VISION BLURRED [None]
  - VISUAL ACUITY REDUCED [None]
